FAERS Safety Report 13567135 (Version 1)
Quarter: 2017Q2

REPORT INFORMATION
  Report Type: Spontaneous
  Country: US (occurrence: US)
  Receive Date: 20170522
  Receipt Date: 20170522
  Transmission Date: 20170830
  Serious: No
  Sender: FDA-Public Use
  Company Number: US-DRREDDYS-USA/USA/16/0084814

PATIENT
  Sex: Female
  Weight: 54.43 kg

DRUGS (2)
  1. ISOTRETINOIN NOT OTHERWISE SPECIFIED [Suspect]
     Active Substance: ISOTRETINOIN
     Indication: ACNE
     Route: 048
  2. ISOTRETINOIN NOT OTHERWISE SPECIFIED [Suspect]
     Active Substance: ISOTRETINOIN
     Route: 048
     Dates: start: 2015

REACTIONS (4)
  - Myalgia [Unknown]
  - Back pain [Unknown]
  - Product quality issue [Unknown]
  - Epistaxis [Unknown]
